FAERS Safety Report 6575747-1 (Version None)
Quarter: 2010Q1

REPORT INFORMATION
  Report Type: 
  Country: None (occurrence: None)
  Receive Date: 20100209
  Receipt Date: 20100205
  Transmission Date: 20100710
  Serious: Yes (Hospitalization)
  Sender: FDA-Public Use
  Company Number: US-MEDIMMUNE-MEDI-0010455

PATIENT
  Sex: Female

DRUGS (1)
  1. SYNAGIS [Suspect]
     Dates: start: 20100204, end: 20100204

REACTIONS (2)
  - OXYGEN SATURATION DECREASED [None]
  - RESPIRATORY SYNCYTIAL VIRUS TEST POSITIVE [None]
